FAERS Safety Report 8918285 (Version 1)
Quarter: 2012Q4

REPORT INFORMATION
  Report Type: 
  Country: US (occurrence: US)
  Receive Date: 20121120
  Receipt Date: 20121120
  Transmission Date: 20130627
  Serious: Yes (Hospitalization)
  Sender: FDA-Public Use
  Company Number: US-GILEAD-2012-0063859

PATIENT
  Sex: Female

DRUGS (15)
  1. LETAIRIS [Suspect]
     Indication: PULMONARY HYPERTENSION
     Dosage: 5 mg, QD
     Route: 048
     Dates: start: 20120928, end: 20121011
  2. LETAIRIS [Suspect]
     Indication: WEIGHT CONTROL
  3. LETAIRIS [Suspect]
     Indication: SLEEP APNOEA SYNDROME
  4. REVATIO [Concomitant]
  5. COUMADIN                           /00014802/ [Concomitant]
  6. LASIX                              /00032601/ [Concomitant]
  7. KLOR-CON [Concomitant]
  8. COZAAR [Concomitant]
  9. ZOCAR [Concomitant]
  10. GLUCOTROL [Concomitant]
  11. PROAIR HFA [Concomitant]
  12. DESYREL [Concomitant]
  13. NORVASC [Concomitant]
  14. HYGROTON [Concomitant]
  15. LEVOTHROID [Concomitant]

REACTIONS (2)
  - Weight increased [Unknown]
  - Dyspnoea [Unknown]
